FAERS Safety Report 4655889-8 (Version None)
Quarter: 2005Q2

REPORT INFORMATION
  Report Type: 
  Country: None (occurrence: None)
  Receive Date: 20050506
  Receipt Date: 20050506
  Transmission Date: 20051028
  Serious: No
  Sender: FDA-Public Use
  Company Number: None

PATIENT
  Age: 43 Year
  Sex: Female
  Weight: 59.8748 kg

DRUGS (10)
  1. IFOSFAMIDE   IFEX [Suspect]
     Indication: CERVIX CARCINOMA
     Dosage: 2000 MG/M2  DAILY INTRAVENOUS
     Route: 042
     Dates: start: 20050321, end: 20050323
  2. BLEOMYCIN [Concomitant]
  3. MESNA [Concomitant]
  4. CARBOPLATIN [Concomitant]
  5. ACETAMINOPHEN [Concomitant]
  6. DOLASETRON [Concomitant]
  7. DEXEMETHASONE [Concomitant]
  8. PROCHLORPERAZINE [Concomitant]
  9. MORPHINE [Concomitant]
  10. TEMAZEPAM [Concomitant]

REACTIONS (6)
  - CONVULSION [None]
  - DYSPHASIA [None]
  - EXPRESSIVE LANGUAGE DISORDER [None]
  - METABOLIC ENCEPHALOPATHY [None]
  - MUSCLE TWITCHING [None]
  - TREMOR [None]
